FAERS Safety Report 9681095 (Version 2)
Quarter: 2013Q4

REPORT INFORMATION
  Report Type: Spontaneous
  Country: US (occurrence: US)
  Receive Date: 20131111
  Receipt Date: 20131202
  Transmission Date: 20140711
  Serious: Yes (Other)
  Sender: FDA-Public Use
  Company Number: US-SA-2013SA115054

PATIENT
  Age: 61 Year
  Sex: Female
  Weight: 77 kg

DRUGS (7)
  1. LASIX [Suspect]
     Route: 065
  2. CELEBREX [Suspect]
     Indication: PAIN
     Dosage: 200 OR 400 MG ACCORDING TO DOCTOR^S ADVICE
     Route: 065
  3. VARENICLINE [Suspect]
     Indication: EX-TOBACCO USER
     Route: 065
     Dates: start: 201303
  4. HYDROCODONE [Suspect]
     Route: 065
  5. PERCOCET [Suspect]
     Route: 065
  6. LOSARTAN POTASSIUM [Concomitant]
     Indication: HYPERTENSION
  7. DILTIAZEM HYDROCHLORIDE [Concomitant]
     Indication: HYPERTENSION

REACTIONS (16)
  - Pericardial effusion [Unknown]
  - Pneumonia [Unknown]
  - Chronic obstructive pulmonary disease [Unknown]
  - Bronchitis [Unknown]
  - Gallbladder disorder [Unknown]
  - Adverse event [Unknown]
  - Intervertebral disc disorder [Unknown]
  - Back pain [Unknown]
  - Gastrooesophageal reflux disease [Unknown]
  - Full blood count decreased [Unknown]
  - Mineral deficiency [Unknown]
  - Ulcer [Unknown]
  - Stress [Unknown]
  - Weight increased [Unknown]
  - Blood magnesium decreased [Unknown]
  - Drug dose omission [Unknown]
